FAERS Safety Report 4668698-0 (Version None)
Quarter: 2005Q2

REPORT INFORMATION
  Report Type: 
  Country: None (occurrence: None)
  Receive Date: 20050523
  Receipt Date: 20000113
  Transmission Date: 20051028
  Serious: Yes (Death, Hospitalization)
  Sender: FDA-Public Use
  Company Number: T00HQ00195.3

PATIENT
  Age: 73 Year
  Sex: Female
  Weight: 80 kg

DRUGS (1)
  1. ZOLEDRONATE VS AREDIA [Suspect]
     Indication: METASTASES TO BONE
     Dosage: 8MG
     Route: 042
     Dates: start: 19990830

REACTIONS (15)
  - BONE PAIN [None]
  - BRONCHITIS [None]
  - BRONCHOPNEUMONIA [None]
  - DISEASE PROGRESSION [None]
  - FAT EMBOLISM [None]
  - LOSS OF CONSCIOUSNESS [None]
  - NEPHRITIS [None]
  - OSTEOMYELITIS [None]
  - PULMONARY EMBOLISM [None]
  - PURULENCE [None]
  - PYREXIA [None]
  - SEPSIS [None]
  - SPINAL FRACTURE [None]
  - SUDDEN DEATH [None]
  - TACHYCARDIA [None]
